FAERS Safety Report 11196181 (Version 1)
Quarter: 2015Q2

REPORT INFORMATION
  Report Type: Spontaneous
  Country: US (occurrence: US)
  Receive Date: 20150617
  Receipt Date: 20150617
  Transmission Date: 20150821
  Serious: Yes (Other)
  Sender: FDA-Public Use
  Company Number: US-SA-2015SA083053

PATIENT
  Age: 88 Year
  Sex: Female

DRUGS (2)
  1. LOVENOX [Suspect]
     Active Substance: ENOXAPARIN SODIUM
     Indication: HIP ARTHROPLASTY
     Route: 065
     Dates: start: 20150605
  2. LOVENOX [Suspect]
     Active Substance: ENOXAPARIN SODIUM
     Indication: HIP ARTHROPLASTY
     Route: 065

REACTIONS (5)
  - Bedridden [Unknown]
  - Contusion [Unknown]
  - Injection site haemorrhage [Unknown]
  - Fatigue [Unknown]
  - Back pain [Unknown]
